FAERS Safety Report 7360387-7 (Version None)
Quarter: 2011Q1

REPORT INFORMATION
  Report Type: 
  Country: None (occurrence: None)
  Receive Date: 20110318
  Receipt Date: 20101215
  Transmission Date: 20110831
  Serious: Yes (Other)
  Sender: FDA-Public Use
  Company Number: US-BAYER-201014446NA

PATIENT
  Sex: Female
  Weight: 61 kg

DRUGS (22)
  1. HYDROCODONE BITARTRATE AND ACETAMINOPHEN [Concomitant]
  2. ZESTRIL [Concomitant]
     Dosage: 10 MG, UNK
  3. NORVASC [Concomitant]
  4. YAZ [Suspect]
     Indication: CONTRACEPTION
     Route: 048
     Dates: start: 20060101
  5. CLOMIPHENE CITRATE [Concomitant]
     Dosage: UNK
     Dates: start: 20061001
  6. ASPIRIN [Concomitant]
     Dosage: 81 MG, UNK
     Route: 048
  7. PAXIL [Concomitant]
     Dosage: 20 MG, PRN
  8. AMBIEN [Concomitant]
     Dosage: 10 MG, UNK
  9. PROPOXYPHENE NAPSYLATE [Concomitant]
     Dosage: UNK
     Dates: start: 20070401
  10. ASPIRIN [Concomitant]
     Indication: HYPERTENSION
     Dosage: UNK
     Dates: start: 20060101
  11. ALDOMET [Concomitant]
  12. ZOLOFT [Concomitant]
  13. YASMIN [Suspect]
     Indication: CONTRACEPTION
  14. VITAMIN C + E [Concomitant]
     Dosage: UNK
     Dates: start: 20060101
  15. IMITREX [Concomitant]
     Indication: HEADACHE
     Dosage: UNK
     Dates: start: 20060101
  16. FISH OIL [Concomitant]
  17. LABETALOL HCL [Concomitant]
     Indication: HYPERTENSION
     Dosage: UNK
     Dates: start: 20060101
  18. SERTRALINE [Concomitant]
     Dosage: 500 MG, UNK
     Dates: start: 20060101
  19. LEXAPRO [Concomitant]
     Dosage: UNK
     Dates: start: 20060301
  20. LOTREL [Concomitant]
     Dosage: UNK UNK, QD
  21. LISINOPRIL [Concomitant]
     Dosage: 10 MG, BID
  22. CYTOTEC [Concomitant]
     Dosage: UNK

REACTIONS (4)
  - CHOLELITHIASIS [None]
  - CHOLECYSTITIS CHRONIC [None]
  - ABDOMINAL PAIN LOWER [None]
  - NAUSEA [None]
